FAERS Safety Report 17979963 (Version 2)
Quarter: 2021Q2

REPORT INFORMATION
  Report Type: Spontaneous
  Country: CA (occurrence: CA)
  Receive Date: 20200703
  Receipt Date: 20210628
  Transmission Date: 20210717
  Serious: Yes (Other)
  Sender: FDA-Public Use
  Company Number: CA-TEVA-2020-CA-1797181

PATIENT

DRUGS (1)
  1. TEVA?MOMETASONE [Suspect]
     Active Substance: MOMETASONE

REACTIONS (2)
  - Diarrhoea [Unknown]
  - Coeliac disease [Unknown]
